FAERS Safety Report 10170018 (Version 1)
Quarter: 2014Q2

REPORT INFORMATION
  Report Type: Spontaneous
  Country: CA (occurrence: CA)
  Receive Date: 20140513
  Receipt Date: 20140513
  Transmission Date: 20141212
  Serious: Yes (Other)
  Sender: FDA-Public Use
  Company Number: CA-GLAXOSMITHKLINE-A1071461A

PATIENT
  Sex: Male
  Weight: 55.1 kg

DRUGS (1)
  1. ARZERRA [Suspect]
     Indication: PRODUCT USED FOR UNKNOWN INDICATION
     Route: 065
     Dates: start: 20131211, end: 20140130

REACTIONS (3)
  - Multi-organ failure [Unknown]
  - Asthenia [Unknown]
  - Drug intolerance [Unknown]
